FAERS Safety Report 4530436-X (Version None)
Quarter: 2004Q4

REPORT INFORMATION
  Report Type: 
  Country: None (occurrence: None)
  Receive Date: 20041215
  Receipt Date: 20041201
  Transmission Date: 20050328
  Serious: No
  Sender: FDA-Public Use
  Company Number: 2004GB02571

PATIENT
  Age: 53 Year
  Sex: Female
  Weight: 62 kg

DRUGS (2)
  1. IRESSA [Suspect]
     Indication: CARCINOMA
     Dosage: 500 MG QD PO
     Route: 048
     Dates: start: 20041028, end: 20041028
  2. FLUCONAZOLE [Concomitant]

REACTIONS (3)
  - CHILLS [None]
  - CYANOSIS [None]
  - DYSPNOEA [None]
